FAERS Safety Report 12253981 (Version 1)
Quarter: 2016Q2

REPORT INFORMATION
  Report Type: Report from Study
  Country: JP (occurrence: JP)
  Receive Date: 20160411
  Receipt Date: 20160411
  Transmission Date: 20160815
  Serious: Yes (Death)
  Sender: FDA-Public Use
  Company Number: JP-009507513-1504JPN007441

PATIENT
  Age: 81 Year
  Sex: Male
  Weight: 50 kg

DRUGS (9)
  1. SOLACET D [Concomitant]
     Indication: FLUID REPLACEMENT
     Dosage: 500 ML, QD
     Dates: start: 20121213, end: 20121218
  2. CUBICIN [Suspect]
     Active Substance: DAPTOMYCIN
     Indication: OFF LABEL USE
     Dosage: 6 MG/KG, QOD
     Route: 041
     Dates: start: 20121215, end: 20121217
  3. BFLUID [Concomitant]
     Active Substance: AMINO ACIDS\DEXTROSE\ELECTROLYTES NOS\VITAMINS
     Indication: NUTRITIONAL SUPPLEMENTATION
     Dosage: 1000 ML, QD
     Route: 041
     Dates: start: 20121213, end: 20121219
  4. VITAMEDIN INTRAVENOUS [Concomitant]
     Active Substance: CYANOCOBALAMIN\PYRIDOXINE HYDROCHLORIDE\THIAMINE
     Indication: VITAMIN SUPPLEMENTATION
     Dosage: 1 DF, QD
     Route: 041
     Dates: start: 20121213, end: 20121219
  5. CUBICIN [Suspect]
     Active Substance: DAPTOMYCIN
     Indication: SEPSIS
     Dosage: 6 MG/KG, QD
     Route: 041
     Dates: start: 20121213, end: 20121217
  6. MEROPENEM. [Concomitant]
     Active Substance: MEROPENEM
     Indication: SEPSIS
     Dosage: 2 G, QD
     Route: 041
     Dates: start: 20121213, end: 20121218
  7. NOR ADRENALINE [Concomitant]
     Indication: SEPSIS
     Dosage: 9 MG, QD
     Route: 051
     Dates: start: 20121213, end: 20121219
  8. SODIUM CHLORIDE. [Concomitant]
     Active Substance: SODIUM CHLORIDE
     Indication: ELECTROLYTE SUBSTITUTION THERAPY
     Dosage: 60 ML, QD
     Route: 041
     Dates: start: 20121213, end: 20121219
  9. LASIX [Concomitant]
     Active Substance: FUROSEMIDE
     Indication: OEDEMA DUE TO RENAL DISEASE
     Dosage: 20 MG, QD
     Dates: start: 20121213, end: 20121218

REACTIONS (2)
  - Drug ineffective [Unknown]
  - Septic shock [Fatal]

NARRATIVE: CASE EVENT DATE: 20121213
